FAERS Safety Report 4747796-7 (Version None)
Quarter: 2005Q3

REPORT INFORMATION
  Report Type: 
  Country: None (occurrence: None)
  Receive Date: 20050817
  Receipt Date: 20050817
  Transmission Date: 20060218
  Serious: Yes (Hospitalization)
  Sender: FDA-Public Use
  Company Number: None

PATIENT
  Sex: Male
  Weight: 97 kg

DRUGS (1)
  1. NIACOR [Suspect]
     Indication: BLOOD CHOLESTEROL INCREASED
     Dosage: 1/2 TABLET   BID   ORAL
     Route: 048
     Dates: start: 20050303, end: 20050401

REACTIONS (3)
  - BURNING SENSATION [None]
  - ERYTHEMA [None]
  - PANIC ATTACK [None]
